FAERS Safety Report 5078715-4 (Version None)
Quarter: 2006Q3

REPORT INFORMATION
  Report Type: 
  Country: None (occurrence: None)
  Receive Date: 20060809
  Receipt Date: 20060809
  Transmission Date: 20061208
  Serious: Yes (Hospitalization)
  Sender: FDA-Public Use
  Company Number: None

PATIENT
  Age: 54 Year
  Sex: Male

DRUGS (1)
  1. DILANTIN [Suspect]
     Dosage: 200 MG BID

REACTIONS (2)
  - BALANCE DISORDER [None]
  - FALL [None]
